FAERS Safety Report 6415980-2 (Version None)
Quarter: 2009Q4

REPORT INFORMATION
  Report Type: 
  Country: None (occurrence: None)
  Receive Date: 20091027
  Receipt Date: 20091020
  Transmission Date: 20100525
  Serious: Yes (Hospitalization)
  Sender: FDA-Public Use
  Company Number: A0812875A

PATIENT
  Age: 55 Year
  Sex: Female

DRUGS (1)
  1. ALLI [Suspect]
     Route: 048
     Dates: start: 20090201

REACTIONS (11)
  - ABDOMINAL DISTENSION [None]
  - BACK PAIN [None]
  - BILIARY TRACT DISORDER [None]
  - CHOLECYSTECTOMY [None]
  - CHOLECYSTITIS [None]
  - CYSTITIS [None]
  - INFLAMMATION [None]
  - MUSCULOSKELETAL CHEST PAIN [None]
  - MUSCULOSKELETAL PAIN [None]
  - NAUSEA [None]
  - PAIN IN EXTREMITY [None]
